FAERS Safety Report 7133396-0 (Version None)
Quarter: 2010Q4

REPORT INFORMATION
  Report Type: 
  Country: None (occurrence: None)
  Receive Date: 20101202
  Receipt Date: 20101129
  Transmission Date: 20110411
  Serious: Yes (Hospitalization, Other)
  Sender: FDA-Public Use
  Company Number: US-PFIZER INC-2010117340

PATIENT
  Sex: Male

DRUGS (1)
  1. CHANTIX [Suspect]
     Indication: SMOKING CESSATION THERAPY
     Dosage: STARTER PACK AND CONTINOUS PACK
     Dates: start: 20080901, end: 20081009

REACTIONS (7)
  - ASTHENIA [None]
  - CONTUSION [None]
  - DIZZINESS [None]
  - LOSS OF CONSCIOUSNESS [None]
  - PNEUMONIA [None]
  - SUICIDAL IDEATION [None]
  - TOOTH INJURY [None]
